FAERS Safety Report 12821001 (Version 1)
Quarter: 2016Q4

REPORT INFORMATION
  Report Type: Other
  Country: US (occurrence: US)
  Receive Date: 20161006
  Receipt Date: 20161006
  Transmission Date: 20170207
  Serious: Yes (Other)
  Sender: FDA-Public Use
  Company Number: US-GUTHY-RENKER LLC-1058056

PATIENT
  Age: 53 Year
  Sex: Female

DRUGS (2)
  1. IT COSMETICS BYE BYE FOUNDATION WITH SPF 50+ [Suspect]
     Active Substance: TITANIUM DIOXIDE\ZINC OXIDE
     Indication: PROPHYLAXIS AGAINST SOLAR RADIATION
     Route: 061
     Dates: start: 20160903
  2. WARFARIN [Concomitant]
     Active Substance: WARFARIN

REACTIONS (4)
  - Eye pruritus [None]
  - Lacrimation increased [None]
  - Eye swelling [Recovered/Resolved]
  - Ocular hyperaemia [None]

NARRATIVE: CASE EVENT DATE: 20160903
